FAERS Safety Report 6160561-1 (Version None)
Quarter: 2009Q2

REPORT INFORMATION
  Report Type: 
  Country: None (occurrence: None)
  Receive Date: 20090415
  Receipt Date: 20090415
  Transmission Date: 20091009
  Serious: Yes (Other)
  Sender: FDA-Public Use
  Company Number: None

PATIENT
  Age: 32 Year
  Sex: Female
  Weight: 63.5036 kg

DRUGS (2)
  1. CYMBALTA [Suspect]
     Indication: ANXIETY
     Dosage: UP TO 90MG 1X PER DAY PO
     Route: 048
     Dates: start: 20081201, end: 20090410
  2. CYMBALTA [Suspect]
     Indication: DEPRESSION
     Dosage: UP TO 90MG 1X PER DAY PO
     Route: 048
     Dates: start: 20081201, end: 20090410

REACTIONS (3)
  - DIZZINESS [None]
  - HEADACHE [None]
  - PERFORMANCE STATUS DECREASED [None]
